FAERS Safety Report 5818306-8 (Version None)
Quarter: 2008Q3

REPORT INFORMATION
  Report Type: 
  Country: None (occurrence: None)
  Receive Date: 20080716
  Receipt Date: 20080708
  Transmission Date: 20090109
  Serious: Yes (Hospitalization)
  Sender: FDA-Public Use
  Company Number: 2008SP013956

PATIENT
  Sex: Male
  Weight: 80 kg

DRUGS (1)
  1. TEMODAL [Suspect]
     Indication: GLIOBLASTOMA
     Dosage: 380 MG; QD; PO
     Route: 048
     Dates: end: 20080606

REACTIONS (2)
  - OVERDOSE [None]
  - PLATELET COUNT DECREASED [None]
